FAERS Safety Report 25744889 (Version 3)
Quarter: 2025Q3

REPORT INFORMATION
  Report Type: Spontaneous
  Country: TW (occurrence: TW)
  Receive Date: 20250901
  Receipt Date: 20250930
  Transmission Date: 20251021
  Serious: Yes (Other)
  Sender: REGENERON
  Company Number: TW-BAYER-2025A113580

PATIENT
  Age: 74 Year
  Sex: Female

DRUGS (2)
  1. EYLEA [Suspect]
     Active Substance: AFLIBERCEPT
     Indication: Macular degeneration
     Route: 031
     Dates: start: 20220801, end: 20250701
  2. EYLEA [Suspect]
     Active Substance: AFLIBERCEPT
     Dosage: LEFT EYE, Q1MON, 5 INJECTIONS, SOLUTION FOR INJECTION
     Route: 031
     Dates: start: 20250219, end: 20250623

REACTIONS (4)
  - Visual impairment [Recovering/Resolving]
  - Uveitis [Recovering/Resolving]
  - Blood glucose increased [Unknown]
  - Vision blurred [Recovering/Resolving]

NARRATIVE: CASE EVENT DATE: 20250101
